FAERS Safety Report 14250675 (Version 1)
Quarter: 2017Q4

REPORT INFORMATION
  Report Type: Spontaneous
  Country: US (occurrence: US)
  Receive Date: 20171205
  Receipt Date: 20171205
  Transmission Date: 20180321
  Serious: Yes (Life-Threatening, Hospitalization, Other)
  Sender: FDA-Public Use
  Company Number: US-SUN PHARMACEUTICAL INDUSTRIES LTD-2017US-155711

PATIENT
  Age: 51 Year
  Sex: Female

DRUGS (1)
  1. ONDANSETRON [Suspect]
     Active Substance: ONDANSETRON
     Indication: PRODUCT USED FOR UNKNOWN INDICATION
     Dosage: 36 MG OF ONDANSETRON IN TOTAL (AT 15:22, 20:30, 21:30, 04:00, 12:47, AND 13:27) ; IN TOTAL
     Route: 042

REACTIONS (4)
  - Torsade de pointes [Recovered/Resolved]
  - Pulse absent [Recovered/Resolved]
  - Electrocardiogram QT prolonged [Unknown]
  - Left ventricular dysfunction [Recovering/Resolving]
